FAERS Safety Report 5997145-1 (Version None)
Quarter: 2008Q4

REPORT INFORMATION
  Report Type: 
  Country: None (occurrence: None)
  Receive Date: 20081212
  Receipt Date: 20081103
  Transmission Date: 20090506
  Serious: No
  Sender: FDA-Public Use
  Company Number: US-ABBOTT-08P-163-0485415-00

PATIENT
  Age: 73 Year
  Sex: Female
  Weight: 65.83 kg

DRUGS (6)
  1. HUMIRA [Suspect]
     Indication: CROHN'S DISEASE
     Dates: start: 20080701, end: 20080801
  2. HUMIRA [Suspect]
     Dates: start: 20080901, end: 20081019
  3. LISINOPRIL [Concomitant]
     Indication: HYPERTENSION
     Route: 048
  4. FLECAINIDE ACETATE [Concomitant]
     Indication: VENTRICULAR EXTRASYSTOLES
     Route: 048
  5. ATENOLOL [Concomitant]
     Indication: VENTRICULAR EXTRASYSTOLES
     Route: 048
  6. MESALAMINE [Concomitant]
     Indication: CROHN'S DISEASE
     Route: 048

REACTIONS (3)
  - ERYTHEMA [None]
  - PRURITUS [None]
  - URTICARIA [None]
